FAERS Safety Report 13488875 (Version 1)
Quarter: 2017Q2

REPORT INFORMATION
  Report Type: Spontaneous
  Country: US (occurrence: US)
  Receive Date: 20170427
  Receipt Date: 20170427
  Transmission Date: 20170830
  Serious: No
  Sender: FDA-Public Use
  Company Number: US-GLAXOSMITHKLINE-US2017060255

PATIENT
  Sex: Male

DRUGS (1)
  1. ABREVA [Suspect]
     Active Substance: DOCOSANOL
     Indication: ORAL HERPES
     Dosage: UNK

REACTIONS (5)
  - Drug administered at inappropriate site [Unknown]
  - Eye swelling [Not Recovered/Not Resolved]
  - Vision blurred [Recovered/Resolved]
  - Application site wound [Not Recovered/Not Resolved]
  - Application site scab [Recovered/Resolved]
